FAERS Safety Report 24326321 (Version 1)
Quarter: 2024Q3

REPORT INFORMATION
  Report Type: Spontaneous
  Country: PL (occurrence: PL)
  Receive Date: 20240917
  Receipt Date: 20240917
  Transmission Date: 20241016
  Serious: Yes (Life-Threatening, Other)
  Sender: CELLTRION
  Company Number: None

PATIENT

DRUGS (6)
  1. INFLIXIMAB [Suspect]
     Active Substance: INFLIXIMAB
     Indication: Colitis ulcerative
     Dosage: 500 MG
     Route: 042
     Dates: start: 20190905, end: 20190919
  2. MESALAMINE [Concomitant]
     Active Substance: MESALAMINE
     Dosage: 4 G, EVERY 24 HOURS
  3. PREDNISONE [Concomitant]
     Active Substance: PREDNISONE
     Dosage: 15 MG
  4. PREDNISONE [Concomitant]
     Active Substance: PREDNISONE
     Dosage: 0 MG
  5. PREDNISONE [Concomitant]
     Active Substance: PREDNISONE
     Dosage: 10 MG
  6. IMURAN [Concomitant]
     Active Substance: AZATHIOPRINE
     Dosage: 150 MG, EVERY 24 HOURS

REACTIONS (6)
  - Blood pressure increased [Unknown]
  - Erythema [Unknown]
  - Headache [Unknown]
  - Heart rate decreased [Unknown]
  - Hyperhidrosis [Unknown]
  - Nausea [Unknown]

NARRATIVE: CASE EVENT DATE: 20190919
